FAERS Safety Report 24044138 (Version 9)
Quarter: 2025Q3

REPORT INFORMATION
  Report Type: Spontaneous
  Country: EU (occurrence: EU)
  Receive Date: 20240703
  Receipt Date: 20250722
  Transmission Date: 20251020
  Serious: Yes (Life-Threatening, Hospitalization, Other)
  Sender: CSL BEHRING
  Company Number: EU-BEH-2024174718

PATIENT
  Age: 5 Year
  Sex: Female
  Weight: 22.2 kg

DRUGS (9)
  1. PRIVIGEN [Suspect]
     Active Substance: HUMAN IMMUNOGLOBULIN G
     Indication: Blood immunoglobulin G decreased
     Route: 065
     Dates: start: 20240626, end: 20240626
  2. PRIVIGEN [Suspect]
     Active Substance: HUMAN IMMUNOGLOBULIN G
     Route: 065
  3. PRIVIGEN [Suspect]
     Active Substance: HUMAN IMMUNOGLOBULIN G
     Route: 042
  4. SIROLIMUS [Concomitant]
     Active Substance: SIROLIMUS
  5. MOMETASONE FUROATE [Concomitant]
     Active Substance: MOMETASONE FUROATE
  6. FOLIC ACID [Concomitant]
     Active Substance: FOLIC ACID
  7. AMOXICILLIN [Concomitant]
     Active Substance: AMOXICILLIN
  8. PREDNISOLONE [Concomitant]
     Active Substance: PREDNISOLONE
  9. ACETAMINOPHEN [Concomitant]
     Active Substance: ACETAMINOPHEN

REACTIONS (23)
  - Anaphylactic shock [Recovered/Resolved]
  - Septic shock [Recovered/Resolved]
  - Vomiting [Recovered/Resolved]
  - Dyspnoea [Recovered/Resolved]
  - Cough [Recovered/Resolved]
  - Chills [Recovered/Resolved]
  - Oropharyngeal pain [Recovered/Resolved]
  - Abdominal pain [Recovered/Resolved]
  - Pallor [Recovered/Resolved]
  - Pain [Recovered/Resolved]
  - Muscle tightness [Recovered/Resolved]
  - Anxiety [Recovered/Resolved]
  - Hypotension [Recovered/Resolved]
  - Heart rate increased [Recovered/Resolved]
  - Body temperature increased [Recovered/Resolved]
  - Retching [Recovered/Resolved]
  - Throat irritation [Recovered/Resolved]
  - Cough [Recovered/Resolved]
  - Tension [Recovered/Resolved]
  - Pallor [Recovered/Resolved]
  - Peripheral coldness [Recovered/Resolved]
  - Livedo reticularis [Recovered/Resolved]
  - Body temperature increased [Recovered/Resolved]

NARRATIVE: CASE EVENT DATE: 20240626
